FAERS Safety Report 22842437 (Version 4)
Quarter: 2023Q4

REPORT INFORMATION
  Report Type: Spontaneous
  Country: NZ (occurrence: None)
  Receive Date: 20230821
  Receipt Date: 20231128
  Transmission Date: 20240109
  Serious: Yes (Other)
  Sender: FDA-Public Use
  Company Number: NZ-ROCHE-3405970

PATIENT
  Sex: Female

DRUGS (1)
  1. TECENTRIQ [Suspect]
     Active Substance: ATEZOLIZUMAB
     Indication: Colorectal cancer
     Dosage: ON 06/MAY/2023 SHE RECEIVED ONE TREATMENT OF ATEZOLIZUMAB
     Route: 065

REACTIONS (5)
  - Pneumonitis [Recovered/Resolved]
  - Respiratory disorder [Recovered/Resolved]
  - Off label use [Unknown]
  - Cough [Unknown]
  - Oropharyngeal pain [Unknown]
